FAERS Safety Report 22823243 (Version 15)
Quarter: 2023Q4

REPORT INFORMATION
  Report Type: Report from Study
  Country: TR (occurrence: None)
  Receive Date: 20230815
  Receipt Date: 20231128
  Transmission Date: 20240109
  Serious: Yes (Hospitalization)
  Sender: FDA-Public Use
  Company Number: TR-ROCHE-3381872

PATIENT
  Age: 57 Year
  Sex: Male
  Weight: 105 kg

DRUGS (32)
  1. ATEZOLIZUMAB [Suspect]
     Active Substance: ATEZOLIZUMAB
     Indication: Small cell lung cancer extensive stage
     Dosage: DATE OF MOST RECENT DOSE OF 1200 MG ATEZOLIZUMAB PRIOR TO ONSET OF AE AND SAE: 20/JUN/2023
     Route: 041
     Dates: start: 20221101
  2. CARBOPLATIN [Suspect]
     Active Substance: CARBOPLATIN
     Indication: Small cell lung cancer extensive stage
     Dosage: START DATE OF MOST RECENT DOSE (450 MG) OF STUDY DRUG PRIOR TO AE 03/JAN/2023
     Route: 065
     Dates: start: 20221101
  3. CARBOPLATIN [Suspect]
     Active Substance: CARBOPLATIN
     Dosage: START DATE OF MOST RECENT DOSE (450 MG) OF STUDY DRUG PRIOR TO AE 03/JAN/2023
     Route: 065
  4. ETOPOSIDE [Suspect]
     Active Substance: ETOPOSIDE
     Indication: Small cell lung cancer extensive stage
     Dosage: START DATE OF MOST RECENT DOSE (100 MG) OF STUDY DRUG PRIOR TO AE 06/JAN/2023
     Route: 065
     Dates: start: 20221101
  5. ETOPOSIDE [Suspect]
     Active Substance: ETOPOSIDE
     Dosage: START DATE OF MOST RECENT DOSE (100 MG) OF STUDY DRUG PRIOR TO AE 06/JAN/2023
     Route: 065
  6. ANDOREX [Concomitant]
     Indication: COVID-19
     Dates: start: 20221215
  7. IBUPROFEN [Concomitant]
     Active Substance: IBUPROFEN
     Indication: Bone pain
  8. NEURONTIN [Concomitant]
     Active Substance: GABAPENTIN
     Indication: Bone pain
     Dates: start: 20230509
  9. NEURONTIN [Concomitant]
     Active Substance: GABAPENTIN
     Indication: Neuralgia
  10. NEXIUM [Concomitant]
     Active Substance: ESOMEPRAZOLE MAGNESIUM
     Indication: Gastrooesophageal reflux disease
     Dates: start: 20230530
  11. NEXIUM [Concomitant]
     Active Substance: ESOMEPRAZOLE MAGNESIUM
     Indication: Adhesion
     Dates: start: 20230620
  12. NEXIUM [Concomitant]
     Active Substance: ESOMEPRAZOLE MAGNESIUM
     Dates: start: 20230818, end: 20230825
  13. NEXIUM [Concomitant]
     Active Substance: ESOMEPRAZOLE MAGNESIUM
     Dates: start: 20230812, end: 20230819
  14. NEVOFAM-L [Concomitant]
     Indication: Premedication
     Dates: start: 20230620, end: 20230620
  15. PHENIRAMINE [Concomitant]
     Active Substance: PHENIRAMINE
     Indication: Premedication
     Dates: start: 20230620, end: 20230620
  16. EMETRIL [Concomitant]
     Indication: Premedication
     Dates: start: 20230620, end: 20230620
  17. SODIUM CHLORIDE [Concomitant]
     Active Substance: SODIUM CHLORIDE
     Indication: Premedication
     Dates: start: 20230620, end: 20230620
  18. ONZYD [Concomitant]
     Indication: Nausea
     Dates: start: 20230620
  19. METOCLOPRAMIDE [Concomitant]
     Active Substance: METOCLOPRAMIDE
     Indication: Nausea
     Route: 065
     Dates: start: 20230620
  20. METOCLOPRAMIDE [Concomitant]
     Active Substance: METOCLOPRAMIDE
     Route: 065
     Dates: start: 20230626, end: 20230630
  21. PAROXETINE HYDROCHLORIDE [Concomitant]
     Active Substance: PAROXETINE HYDROCHLORIDE\PAROXETINE HYDROCHLORIDE ANHYDROUS
     Indication: Prophylaxis
     Dates: start: 20230703, end: 20230714
  22. PAROXETINE HYDROCHLORIDE [Concomitant]
     Active Substance: PAROXETINE HYDROCHLORIDE\PAROXETINE HYDROCHLORIDE ANHYDROUS
     Dates: start: 20230714
  23. PAROXETINE HYDROCHLORIDE [Concomitant]
     Active Substance: PAROXETINE HYDROCHLORIDE\PAROXETINE HYDROCHLORIDE ANHYDROUS
     Dates: start: 20230704
  24. PAROXETINE HYDROCHLORIDE [Concomitant]
     Active Substance: PAROXETINE HYDROCHLORIDE\PAROXETINE HYDROCHLORIDE ANHYDROUS
     Dates: start: 20230818, end: 20230825
  25. ISOTONIC SODIUM CHLORIDE SOLUTION [Concomitant]
     Active Substance: SODIUM CHLORIDE
     Indication: Gastrooesophageal reflux disease
     Dates: start: 20230624, end: 20230624
  26. PANTOPRAZOLE SODIUM [Concomitant]
     Active Substance: PANTOPRAZOLE SODIUM
     Indication: Gastrooesophageal reflux disease
     Dates: start: 20230624, end: 20230624
  27. METOCLOPRAMIDE HYDROCHLORIDE [Concomitant]
     Active Substance: METOCLOPRAMIDE HYDROCHLORIDE
     Indication: Gastrooesophageal reflux disease
     Dates: start: 20230624, end: 20230624
  28. PREDNISOLONE [Concomitant]
     Active Substance: PREDNISOLONE
     Dates: start: 20230927, end: 20231004
  29. BIOTIN [Concomitant]
     Active Substance: BIOTIN
     Dates: start: 20230818, end: 20230825
  30. VALTREX [Concomitant]
     Active Substance: VALACYCLOVIR HYDROCHLORIDE
     Dates: start: 20230812, end: 20230819
  31. FUCIDIN [Concomitant]
     Active Substance: FUSIDATE SODIUM
     Indication: Adhesion
     Dates: start: 20230812, end: 20230819
  32. PAROL PLUS (TURKEY) [Concomitant]
     Dates: start: 20230812, end: 20230819

REACTIONS (2)
  - Chronic gastritis [Recovered/Resolved]
  - Adhesion [Recovered/Resolved]

NARRATIVE: CASE EVENT DATE: 20230701
